FAERS Safety Report 7778476-1 (Version None)
Quarter: 2011Q3

REPORT INFORMATION
  Report Type: 
  Country: None (occurrence: None)
  Receive Date: 20110926
  Receipt Date: 20110920
  Transmission Date: 20111222
  Serious: Yes (Death, Hospitalization)
  Sender: FDA-Public Use
  Company Number: LB-GLAXOSMITHKLINE-B0750246A

PATIENT
  Age: 86 Year
  Sex: Male

DRUGS (2)
  1. LAMICTAL [Suspect]
     Indication: EPILEPSY
     Route: 065
     Dates: start: 20110819, end: 20110912
  2. KEPPRA [Concomitant]
     Dosage: 2500MG PER DAY

REACTIONS (5)
  - TOXIC EPIDERMAL NECROLYSIS [None]
  - STEVENS-JOHNSON SYNDROME [None]
  - SEPTIC SHOCK [None]
  - ACCIDENTAL OVERDOSE [None]
  - ORAL MUCOSAL ERYTHEMA [None]
